FAERS Safety Report 17157538 (Version 1)
Quarter: 2019Q4

REPORT INFORMATION
  Report Type: Spontaneous
  Country: US (occurrence: US)
  Receive Date: 20191213
  Receipt Date: 20191213
  Transmission Date: 20200122
  Serious: Yes (Life-Threatening, Hospitalization, Disabling)
  Sender: FDA-Public Use
  Company Number: None

PATIENT
  Age: 65 Year
  Sex: Female
  Weight: 61.2 kg

DRUGS (7)
  1. TUMERIC [Concomitant]
     Active Substance: HERBALS\TURMERIC
  2. CALCIUM [Concomitant]
     Active Substance: CALCIUM
  3. FISH OIL [Concomitant]
     Active Substance: FISH OIL
  4. VITAMIN D [Concomitant]
     Active Substance: VITAMIN D NOS
  5. TYLENOL [Concomitant]
     Active Substance: ACETAMINOPHEN
  6. NAPROXEN. [Concomitant]
     Active Substance: NAPROXEN
  7. FOSAMAX [Suspect]
     Active Substance: ALENDRONATE SODIUM
     Indication: OSTEOPOROSIS

REACTIONS (3)
  - Fall [None]
  - Femur fracture [None]
  - Gait inability [None]

NARRATIVE: CASE EVENT DATE: 20121204
